FAERS Safety Report 9796486 (Version 1)
Quarter: 2014Q1

REPORT INFORMATION
  Report Type: Spontaneous
  Country: US (occurrence: US)
  Receive Date: 20140103
  Receipt Date: 20140103
  Transmission Date: 20141002
  Serious: Yes (Death)
  Sender: FDA-Public Use
  Company Number: US-GLAXOSMITHKLINE-A1055201A

PATIENT
  Age: 65 Year
  Sex: Male

DRUGS (7)
  1. VOTRIENT [Suspect]
     Indication: THYROID CANCER
     Dosage: 800MG PER DAY
     Route: 048
     Dates: start: 20130821
  2. LYRICA [Concomitant]
  3. TRICOR [Concomitant]
  4. PROZAC [Concomitant]
  5. SYNTHROID [Concomitant]
  6. SINEMET [Concomitant]
  7. DEXTROAMPHETAMINE [Concomitant]

REACTIONS (1)
  - Death [Fatal]
